FAERS Safety Report 15603218 (Version 1)
Quarter: 2018Q4

REPORT INFORMATION
  Report Type: Spontaneous
  Country: BG (occurrence: BG)
  Receive Date: 20181109
  Receipt Date: 20181109
  Transmission Date: 20190205
  Serious: Yes (Hospitalization, Other)
  Sender: FDA-Public Use
  Company Number: BG-ASTRAZENECA-2018SF46021

PATIENT
  Age: 75 Year
  Sex: Female

DRUGS (3)
  1. TIOTROPIUM [Concomitant]
     Active Substance: TIOTROPIUM
  2. INDACATEROL [Concomitant]
     Active Substance: INDACATEROL
  3. SYMBICORT [Suspect]
     Active Substance: BUDESONIDE\FORMOTEROL FUMARATE DIHYDRATE
     Indication: CHRONIC OBSTRUCTIVE PULMONARY DISEASE
     Dosage: 160/4.5, 2X2 INHALATIONS
     Route: 055
     Dates: start: 201411

REACTIONS (2)
  - Upper respiratory tract infection [Unknown]
  - Chronic obstructive pulmonary disease [Unknown]
